FAERS Safety Report 9802970 (Version 1)
Quarter: 2014Q1

REPORT INFORMATION
  Report Type: Spontaneous
  Country: US (occurrence: None)
  Receive Date: 20140106
  Receipt Date: 20140106
  Transmission Date: 20141002
  Serious: Yes (Other)
  Sender: FDA-Public Use
  Company Number: None

PATIENT
  Age: 60 Year
  Sex: Male

DRUGS (1)
  1. NEXAVAR 200MG BAYER [Suspect]
     Indication: RENAL CANCER
     Route: 048
     Dates: start: 20131221

REACTIONS (4)
  - Dry skin [None]
  - Haemoptysis [None]
  - Dermatitis infected [None]
  - Radiation injury [None]
